FAERS Safety Report 15464267 (Version 2)
Quarter: 2019Q4

REPORT INFORMATION
  Report Type: Spontaneous
  Country: CZ (occurrence: CZ)
  Receive Date: 20181004
  Receipt Date: 20191205
  Transmission Date: 20200122
  Serious: Yes (Death, Life-Threatening, Hospitalization, Other)
  Sender: FDA-Public Use
  Company Number: CZ-MACLEODS PHARMACEUTICALS US LTD-MAC2018017069

PATIENT

DRUGS (3)
  1. ESCITALOPRAM OXALATE. [Suspect]
     Active Substance: ESCITALOPRAM OXALATE
     Indication: SUICIDE ATTEMPT
     Dosage: UNK UNK, QD
  2. YEW [Suspect]
     Active Substance: HERBALS\HOMEOPATHICS\TAXUS BACCATA FRUIT
     Indication: SUICIDE ATTEMPT
     Dosage: 50 GRAMS, UNK
     Route: 065
  3. ESCITALOPRAM OXALATE. [Suspect]
     Active Substance: ESCITALOPRAM OXALATE
     Indication: DEPRESSION
     Dosage: 250 MILLIGRAM, 1 TOTAL
     Route: 048

REACTIONS (18)
  - Ejection fraction decreased [Recovered/Resolved]
  - Right ventricular dysfunction [Recovered/Resolved]
  - Peripheral ischaemia [Recovered/Resolved]
  - Bradycardia [Recovered/Resolved]
  - Cardiac fibrillation [Recovered/Resolved]
  - Ventricular tachycardia [Recovered/Resolved]
  - Serotonin syndrome [Not Recovered/Not Resolved]
  - Brain death [Fatal]
  - Toxicity to various agents [Not Recovered/Not Resolved]
  - Ventricular fibrillation [Recovered/Resolved]
  - Right ventricular dilatation [Recovered/Resolved]
  - Left ventricular dysfunction [Recovered/Resolved]
  - Peripheral artery occlusion [Recovered/Resolved]
  - Intentional overdose [Not Recovered/Not Resolved]
  - Distributive shock [Recovered/Resolved]
  - Coma [Not Recovered/Not Resolved]
  - Hypokinesia [Recovered/Resolved]
  - Electrocardiogram QRS complex prolonged [Recovered/Resolved]
